FAERS Safety Report 6020772-2 (Version None)
Quarter: 2008Q4

REPORT INFORMATION
  Report Type: 
  Country: None (occurrence: None)
  Receive Date: 20081229
  Receipt Date: 20081222
  Transmission Date: 20090506
  Serious: Yes (Hospitalization, Other)
  Sender: FDA-Public Use
  Company Number: US-JNJFOC-20081003471

PATIENT
  Sex: Female

DRUGS (3)
  1. PROPULSID [Suspect]
     Indication: PRESBYOESOPHAGUS
     Dosage: 3-4 MONTHS
     Route: 065
  2. CARDIZEM [Interacting]
     Indication: DRUG USE FOR UNKNOWN INDICATION
     Dosage: LONG TERM DAILY
     Route: 065
  3. LASIX [Concomitant]
     Route: 065

REACTIONS (4)
  - CARDIAC FAILURE CONGESTIVE [None]
  - DRUG INTERACTION [None]
  - DRUG TOXICITY [None]
  - OESOPHAGEAL OBSTRUCTION [None]
